FAERS Safety Report 14159318 (Version 1)
Quarter: 2017Q4

REPORT INFORMATION
  Report Type: Report from Study
  Country: US (occurrence: US)
  Receive Date: 20171106
  Receipt Date: 20171106
  Transmission Date: 20180321
  Serious: Yes (Other)
  Sender: FDA-Public Use
  Company Number: US-UCBSA-2016039926

PATIENT
  Sex: Female

DRUGS (7)
  1. LEVETIRACETAM. [Suspect]
     Active Substance: LEVETIRACETAM
     Dosage: 2000 MG A DAY
  2. TEGRETOL [Concomitant]
     Active Substance: CARBAMAZEPINE
     Indication: SEIZURE
     Dosage: 1000 MG, UNK
  3. FRISIUM [Concomitant]
     Active Substance: CLOBAZAM
     Dosage: 10 MG, UNK
  4. VIMPAT [Suspect]
     Active Substance: LACOSAMIDE
     Indication: SEIZURE
     Dosage: UNKNOWN DOSE
  5. TOPAMAX [Concomitant]
     Active Substance: TOPIRAMATE
     Indication: PRODUCT USED FOR UNKNOWN INDICATION
     Dosage: UNK
  6. LEVETIRACETAM. [Suspect]
     Active Substance: LEVETIRACETAM
     Indication: SEIZURE
     Dosage: 3000 MG, A DAY
  7. FRISIUM [Concomitant]
     Active Substance: CLOBAZAM
     Indication: SEIZURE
     Dosage: 20 MG, UNK

REACTIONS (19)
  - Aphasia [Unknown]
  - Anxiety [Unknown]
  - Headache [Unknown]
  - Malaise [Unknown]
  - Temperature regulation disorder [Unknown]
  - Gait inability [Unknown]
  - Somnolence [Unknown]
  - Formication [Unknown]
  - Depression [Unknown]
  - Aggression [Unknown]
  - Unevaluable event [Unknown]
  - Fatigue [Unknown]
  - Hypoaesthesia oral [Unknown]
  - Surgery [Unknown]
  - Ageusia [Unknown]
  - Drug ineffective [Unknown]
  - Pain [Unknown]
  - Withdrawal syndrome [Unknown]
  - Anger [Unknown]
